FAERS Safety Report 20933677 (Version 2)
Quarter: 2022Q2

REPORT INFORMATION
  Report Type: Spontaneous
  Country: CN (occurrence: CN)
  Receive Date: 20220608
  Receipt Date: 20220609
  Transmission Date: 20220721
  Serious: Yes (Hospitalization)
  Sender: FDA-Public Use
  Company Number: CN-PFIZER INC-202200810225

PATIENT
  Age: 59 Year
  Sex: Female

DRUGS (2)
  1. EPIRUBICIN [Suspect]
     Active Substance: EPIRUBICIN
     Indication: Endometrial adenoma
     Dosage: 150 MG, 1X/DAY
     Route: 041
     Dates: start: 20220518, end: 20220518
  2. CISPLATIN [Suspect]
     Active Substance: CISPLATIN
     Indication: Endometrial adenoma
     Dosage: 40 MG, 1X/DAY
     Route: 041
     Dates: start: 20220518, end: 20220520

REACTIONS (3)
  - Asthenia [Unknown]
  - Nausea [Unknown]
  - Off label use [Recovered/Resolved]

NARRATIVE: CASE EVENT DATE: 20220518
